FAERS Safety Report 25001400 (Version 1)
Quarter: 2025Q1

REPORT INFORMATION
  Report Type: Spontaneous
  Country: US (occurrence: US)
  Receive Date: 20250223
  Receipt Date: 20250223
  Transmission Date: 20250408
  Serious: No
  Sender: BAYER HEALTHCARE LLC
  Company Number: US-BAYER-2025A023064

PATIENT
  Age: 67 Year
  Sex: Male

DRUGS (1)
  1. LOTRIMIN ULTRA JOCK ITCH [Suspect]
     Active Substance: BUTENAFINE HYDROCHLORIDE
     Indication: Fungal infection
     Dosage: UNK, BID
     Route: 061
     Dates: end: 20250209

REACTIONS (1)
  - Skin exfoliation [Not Recovered/Not Resolved]
